FAERS Safety Report 21292712 (Version 1)
Quarter: 2022Q3

REPORT INFORMATION
  Report Type: Spontaneous
  Country: US (occurrence: US)
  Receive Date: 20220905
  Receipt Date: 20220905
  Transmission Date: 20221027
  Serious: No
  Sender: FDA-Public Use
  Company Number: US-BRISTOL-MYERS SQUIBB COMPANY-2022-099303

PATIENT
  Age: 66 Year
  Sex: Female

DRUGS (1)
  1. THALOMID [Suspect]
     Active Substance: THALIDOMIDE
     Indication: Behcet^s syndrome
     Dosage: FREQUENCY : TAKE 1 CAPSULE BY MOUTH EVERY DAY ONE HOUR AFTER EVENING MEAL.
     Route: 048
     Dates: start: 20200512

REACTIONS (2)
  - Food poisoning [Recovered/Resolved]
  - Intentional product use issue [Unknown]
